FAERS Safety Report 17501093 (Version 1)
Quarter: 2020Q1

REPORT INFORMATION
  Report Type: Report from Study
  Country: DE (occurrence: DE)
  Receive Date: 20200305
  Receipt Date: 20200305
  Transmission Date: 20200409
  Serious: Yes (Hospitalization, Other)
  Sender: FDA-Public Use
  Company Number: DE-GLAXOSMITHKLINE-DE-2014TSO00096

PATIENT
  Age: 33 Year
  Sex: Female
  Weight: 52 kg

DRUGS (7)
  1. PANTOZOL [Concomitant]
     Active Substance: PANTOPRAZOLE SODIUM
     Indication: PROPHYLAXIS
     Dosage: 40 MG, QD
     Route: 048
     Dates: start: 20110115
  2. NIRAPARIB [Suspect]
     Active Substance: NIRAPARIB
     Dosage: UNK
  3. L-THYROXIN [Concomitant]
     Active Substance: LEVOTHYROXINE SODIUM
     Indication: HYPOTHYROIDISM
     Dosage: 75 MG, QD
     Route: 048
     Dates: start: 20110115
  4. HALOPERIDOL. [Concomitant]
     Active Substance: HALOPERIDOL
     Indication: PROPHYLAXIS OF NAUSEA AND VOMITING
     Dosage: 2 MG, QD
     Route: 048
     Dates: start: 20140915
  5. NIRAPARIB [Suspect]
     Active Substance: NIRAPARIB
     Indication: OVARIAN CANCER
     Dosage: 300 MG, QD
     Route: 048
     Dates: start: 20140925, end: 20141008
  6. ZOMETA [Concomitant]
     Active Substance: ZOLEDRONIC ACID
     Indication: PROPHYLAXIS
     Dosage: 4 MG, 4 WEEKLY
     Route: 042
     Dates: start: 20140115
  7. NIRAPARIB [Suspect]
     Active Substance: NIRAPARIB
     Dosage: 200 MG, QD
     Route: 048
     Dates: start: 20141027, end: 20141110

REACTIONS (5)
  - Pyelonephritis [Recovered/Resolved]
  - Pancytopenia [Recovered/Resolved]
  - Subileus [Recovered/Resolved]
  - Constipation [Recovered/Resolved]
  - Pancytopenia [Recovered/Resolved]

NARRATIVE: CASE EVENT DATE: 20141006
